FAERS Safety Report 10338187 (Version 1)
Quarter: 2014Q3

REPORT INFORMATION
  Report Type: Spontaneous
  Country: US (occurrence: None)
  Receive Date: 20140722
  Receipt Date: 20140722
  Transmission Date: 20150326
  Serious: Yes (Disabling, Other)
  Sender: FDA-Public Use
  Company Number: DEP_02186_2014

PATIENT
  Age: 57 Year
  Sex: Female
  Weight: 86.18 kg

DRUGS (7)
  1. GRALISE [Suspect]
     Active Substance: GABAPENTIN
     Indication: NEURALGIA
     Dosage: STARTER PACK, ON TITRATION SCHEDULE UP TO 1800 MG ORAL
     Route: 048
     Dates: start: 201403, end: 2014
  2. GRALISE [Suspect]
     Active Substance: GABAPENTIN
     Indication: OFF LABEL USE
     Dosage: STARTER PACK, ON TITRATION SCHEDULE UP TO 1800 MG ORAL
     Route: 048
     Dates: start: 201403, end: 2014
  3. SOMA [Concomitant]
     Active Substance: CARISOPRODOL
  4. EXALGO [Suspect]
     Active Substance: HYDROMORPHONE HYDROCHLORIDE
     Indication: BACK PAIN
     Dosage: DF
     Dates: end: 20140621
  5. PREDNISONE. [Concomitant]
     Active Substance: PREDNISONE
  6. OXYCODONE [Suspect]
     Active Substance: OXYCODONE
     Indication: BACK PAIN
     Route: 048
  7. OXYCONTIN [Suspect]
     Active Substance: OXYCODONE HYDROCHLORIDE
     Indication: BACK PAIN
     Route: 048
     Dates: start: 20140621

REACTIONS (7)
  - Joint effusion [None]
  - Walking aid user [None]
  - Weight increased [None]
  - Weight bearing difficulty [None]
  - Amnesia [None]
  - Gait disturbance [None]
  - Impaired work ability [None]

NARRATIVE: CASE EVENT DATE: 201403
